FAERS Safety Report 24210969 (Version 2)
Quarter: 2024Q3

REPORT INFORMATION
  Report Type: Spontaneous
  Country: HR (occurrence: HR)
  Receive Date: 20240814
  Receipt Date: 20240912
  Transmission Date: 20241016
  Serious: Yes (Other)
  Sender: ORGANON
  Company Number: None

PATIENT
  Age: 31 Year
  Sex: Male
  Weight: 76 kg

DRUGS (1)
  1. PROSCAR [Suspect]
     Active Substance: FINASTERIDE
     Indication: Androgenetic alopecia
     Dosage: REPORTED 1 MG
     Route: 048
     Dates: start: 20190924, end: 20240624

REACTIONS (4)
  - Disturbance in sexual arousal [Recovering/Resolving]
  - Orgasmic sensation decreased [Recovering/Resolving]
  - Genital anaesthesia [Recovering/Resolving]
  - Product use in unapproved indication [Recovering/Resolving]

NARRATIVE: CASE EVENT DATE: 20210801
